FAERS Safety Report 5588668-8 (Version None)
Quarter: 2008Q1

REPORT INFORMATION
  Report Type: 
  Country: None (occurrence: None)
  Receive Date: 20080111
  Receipt Date: 20080107
  Transmission Date: 20080703
  Serious: Yes (Death, Hospitalization)
  Sender: FDA-Public Use
  Company Number: A0664572A

PATIENT
  Age: 62 Year
  Sex: Female

DRUGS (6)
  1. TYKERB [Suspect]
     Indication: BREAST CANCER
     Route: 048
     Dates: start: 20070508
  2. XELODA [Suspect]
     Indication: BREAST CANCER
     Dosage: 3TAB TWICE PER DAY
     Route: 048
     Dates: start: 20070508
  3. ACIPHEX [Concomitant]
  4. PAROXETINE [Concomitant]
  5. IMODIUM [Concomitant]
  6. IV FLUIDS [Concomitant]

REACTIONS (3)
  - DEATH [None]
  - DIARRHOEA [None]
  - METASTASES TO CENTRAL NERVOUS SYSTEM [None]
